FAERS Safety Report 25090557 (Version 1)
Quarter: 2025Q1

REPORT INFORMATION
  Report Type: Spontaneous
  Country: US (occurrence: None)
  Receive Date: 20250318
  Receipt Date: 20250318
  Transmission Date: 20250409
  Serious: Yes (Hospitalization)
  Sender: FDA-CTU
  Company Number: None

PATIENT
  Age: 65 Year
  Sex: Male
  Weight: 51.3 kg

DRUGS (9)
  1. CARBOPLATIN [Suspect]
     Active Substance: CARBOPLATIN
  2. PACLITAXEWL PROTEIN-BOUND PARTICLES (ALBUMIN-BOUND) [Concomitant]
  3. PEMBROLIZUMAB [Concomitant]
     Active Substance: PEMBROLIZUMAB
  4. ALBUTEROL [Concomitant]
     Active Substance: ALBUTEROL
  5. COMPAZINE [Concomitant]
     Active Substance: PROCHLORPERAZINE MALEATE
  6. ONDANSETRON [Concomitant]
     Active Substance: ONDANSETRON
  7. TRELEGY ELLIPTA [Concomitant]
     Active Substance: FLUTICASONE FUROATE\UMECLIDINIUM BROMIDE\VILANTEROL TRIFENATATE
  8. METFORMIN [Concomitant]
     Active Substance: METFORMIN HYDROCHLORIDE
  9. NINTEDANIB [Concomitant]
     Active Substance: NINTEDANIB

REACTIONS (2)
  - Pneumomediastinum [None]
  - Non-cardiac chest pain [None]

NARRATIVE: CASE EVENT DATE: 20250314
